FAERS Safety Report 10963445 (Version 1)
Quarter: 2015Q1

REPORT INFORMATION
  Report Type: Spontaneous
  Country: US (occurrence: None)
  Receive Date: 20150327
  Receipt Date: 20150327
  Transmission Date: 20150721
  Serious: No
  Sender: FDA-Public Use
  Company Number: None

PATIENT
  Age: 65 Year
  Sex: Female

DRUGS (2)
  1. PLASTIC APPLICATOR WARNER CHILCOTT [Concomitant]
  2. ESTRACE [Suspect]
     Active Substance: ESTRADIOL

REACTIONS (1)
  - Product cleaning inadequate [None]

NARRATIVE: CASE EVENT DATE: 20150302
